FAERS Safety Report 7831401-7 (Version None)
Quarter: 2011Q4

REPORT INFORMATION
  Report Type: 
  Country: None (occurrence: None)
  Receive Date: 20111021
  Receipt Date: 20111007
  Transmission Date: 20120403
  Serious: Yes (Other)
  Sender: FDA-Public Use
  Company Number: CA-WATSON-2011-16130

PATIENT
  Sex: Female

DRUGS (2)
  1. TRELSTAR DEPOT MIXJECT (WATSON LABORATORIES) [Suspect]
     Indication: BREAST CANCER
     Dosage: 3.75 MG, UNK
     Route: 030
     Dates: start: 20050124, end: 20091229
  2. EXEMESTANE [Suspect]
     Indication: BREAST CANCER
     Dosage: 25MG
     Route: 065
     Dates: start: 20050124, end: 20100107

REACTIONS (1)
  - PATHOLOGICAL FRACTURE [None]
